FAERS Safety Report 4447948-X (Version None)
Quarter: 2004Q3

REPORT INFORMATION
  Report Type: 
  Country: None (occurrence: None)
  Receive Date: 20040913
  Receipt Date: 20040825
  Transmission Date: 20050211
  Serious: Yes (Other)
  Sender: FDA-Public Use
  Company Number: CA-ROCHE-379980

PATIENT
  Age: 51 Year
  Sex: Male

DRUGS (3)
  1. CELLCEPT [Suspect]
     Indication: DRUG USE FOR UNKNOWN INDICATION
     Route: 065
  2. NEORAL [Suspect]
     Indication: DRUG USE FOR UNKNOWN INDICATION
     Route: 065
  3. PREDNISONE [Concomitant]

REACTIONS (7)
  - COMA [None]
  - CONFUSIONAL STATE [None]
  - ENCEPHALITIS [None]
  - HEADACHE [None]
  - PLEOCYTOSIS [None]
  - PYREXIA [None]
  - VIRAL INFECTION [None]
